FAERS Safety Report 9586054 (Version 1)
Quarter: 2013Q4

REPORT INFORMATION
  Report Type: Spontaneous
  Country: FR (occurrence: FR)
  Receive Date: 20131003
  Receipt Date: 20131003
  Transmission Date: 20140711
  Serious: Yes (Death, Hospitalization)
  Sender: FDA-Public Use
  Company Number: FR-ROCHE-1284112

PATIENT
  Age: 86 Year
  Sex: Female

DRUGS (5)
  1. VALIUM [Suspect]
     Indication: AGITATION
     Route: 048
     Dates: start: 201305, end: 20130529
  2. LOXEN LP [Concomitant]
     Route: 065
  3. LEVOTHYROX [Concomitant]
  4. ARICEPT [Concomitant]
  5. FIXICAL [Concomitant]
     Dosage: FIXICAL VITAMINE D3
     Route: 065

REACTIONS (1)
  - Coma [Fatal]
